FAERS Safety Report 9275741 (Version 1)
Quarter: 2013Q1

REPORT INFORMATION
  Report Type: Spontaneous
  Country: US (occurrence: None)
  Receive Date: 20130318
  Receipt Date: 20130318
  Transmission Date: 20140127
  Serious: Yes (Other)
  Sender: FDA-Public Use
  Company Number: 2012-021

PATIENT
  Sex: Female
  Weight: 45.81 kg

DRUGS (1)
  1. CHLORHEXIDINE GLUCONATE ORAL RINSE, 0.12% [Suspect]

REACTIONS (5)
  - Weight decreased [None]
  - Tooth deposit [None]
  - Dental caries [None]
  - Poor personal hygiene [None]
  - Fungal infection [None]
